FAERS Safety Report 18100634 (Version 1)
Quarter: 2020Q3

REPORT INFORMATION
  Report Type: Spontaneous
  Country: NL (occurrence: PL)
  Receive Date: 20200731
  Receipt Date: 20200731
  Transmission Date: 20201103
  Serious: Yes (Other)
  Sender: FDA-Public Use
  Company Number: PL-FRESENIUS KABI-FK202007871

PATIENT
  Age: 67 Year
  Sex: Female
  Weight: 54 kg

DRUGS (7)
  1. FLUOROURACIL. [Suspect]
     Active Substance: FLUOROURACIL
     Dosage: DOSE: 912; DOSE UNIT: NOT SPECIFIED
     Route: 065
     Dates: start: 20171127, end: 20171128
  2. FILGRASTIM [Suspect]
     Active Substance: FILGRASTIM
     Indication: GASTRIC CANCER
     Route: 065
     Dates: start: 20171130, end: 20171203
  3. FLUOROURACIL. [Suspect]
     Active Substance: FLUOROURACIL
     Indication: GASTRIC CANCER
     Dosage: DOSE: 608; DOSE UNIT: NOT SPECIFIED
     Route: 065
     Dates: start: 20171127, end: 20171128
  4. DEXAMETHASONE SODIUM PHOSPHATE. [Suspect]
     Active Substance: DEXAMETHASONE SODIUM PHOSPHATE
     Indication: GASTRIC CANCER
     Dosage: DOSE: 8; DOSE UNIT: NOT SPECIFIED
     Route: 065
     Dates: start: 20171127, end: 20171128
  5. ATROPINE. [Suspect]
     Active Substance: ATROPINE
     Indication: GASTRIC CANCER
     Dosage: DOSE: 0.5; DOSE UNIT: NOT SPECIFIED
     Route: 065
     Dates: start: 20171127, end: 20171127
  6. ONDANSETRON (MANUFACTURER UNKNOWN) [Suspect]
     Active Substance: ONDANSETRON
     Indication: GASTRIC CANCER
     Dosage: DOSE: 8; DOSE UNIT: NOT SPECIFIED
     Route: 065
     Dates: start: 20171127, end: 20171128
  7. IRINOTECAN (MANUFACTURER UNKNOWN) [Suspect]
     Active Substance: IRINOTECAN
     Indication: GASTRIC CANCER
     Dosage: DOSE: 273; DOSE UNIT: NOT SPECIFIED
     Route: 065
     Dates: start: 20171127, end: 20171127

REACTIONS (2)
  - Leukopenia [Recovering/Resolving]
  - Neutropenia [Recovering/Resolving]

NARRATIVE: CASE EVENT DATE: 20171211
